FAERS Safety Report 6283315-4 (Version None)
Quarter: 2009Q3

REPORT INFORMATION
  Report Type: 
  Country: None (occurrence: None)
  Receive Date: 20090724
  Receipt Date: 20090721
  Transmission Date: 20100115
  Serious: Yes (Death, Other)
  Sender: FDA-Public Use
  Company Number: US-JNJFOC-20090707115

PATIENT
  Sex: Female

DRUGS (2)
  1. RISPERDAL [Suspect]
     Dosage: INDICATION: STOP GETTING OUT OF BED
     Route: 048
  2. RISPERDAL [Suspect]
     Indication: DRUG USE FOR UNKNOWN INDICATION
     Dosage: INDICATION: STOP GETTING OUT OF BED
     Route: 048

REACTIONS (4)
  - GAIT DISTURBANCE [None]
  - LETHARGY [None]
  - SEPSIS [None]
  - UPPER RESPIRATORY TRACT INFECTION [None]
